FAERS Safety Report 9155284 (Version 1)
Quarter: 2013Q1

REPORT INFORMATION
  Report Type: Spontaneous
  Country: FR (occurrence: FR)
  Receive Date: 20130311
  Receipt Date: 20130311
  Transmission Date: 20140127
  Serious: Yes (Hospitalization, Other)
  Sender: FDA-Public Use
  Company Number: FR-ROCHE-GNE264171

PATIENT
  Age: 85 Year
  Sex: Male

DRUGS (3)
  1. LUCENTIS [Suspect]
     Indication: AGE-RELATED MACULAR DEGENERATION
     Dosage: FORM STRENGTH: 10 MG/ML
     Route: 050
     Dates: start: 20080229
  2. CASODEX [Concomitant]
     Indication: PRODUCT USED FOR UNKNOWN INDICATION
  3. PARIET [Concomitant]
     Indication: PRODUCT USED FOR UNKNOWN INDICATION
     Route: 065

REACTIONS (7)
  - Cerebrovascular accident [Recovered/Resolved]
  - Left ventricular failure [Recovering/Resolving]
  - Transient ischaemic attack [Recovering/Resolving]
  - Nuclear magnetic resonance imaging brain abnormal [Recovering/Resolving]
  - Dyslipidaemia [Recovering/Resolving]
  - Computerised tomogram head abnormal [Recovering/Resolving]
  - Arteriosclerosis [Recovering/Resolving]
